FAERS Safety Report 8624273-4 (Version None)
Quarter: 2012Q3

REPORT INFORMATION
  Report Type: 
  Country: None (occurrence: None)
  Receive Date: 20120827
  Receipt Date: 20120821
  Transmission Date: 20120928
  Serious: Yes (Death)
  Sender: FDA-Public Use
  Company Number: US-CELGENEUS-163-21880-12060987

PATIENT
  Sex: Male
  Weight: 79 kg

DRUGS (14)
  1. BORTEZOMIB [Concomitant]
     Indication: CHEMOTHERAPY
     Dosage: 2.4 MILLIGRAM
     Route: 058
     Dates: start: 20110722, end: 20120419
  2. CARDURA [Concomitant]
     Dosage: 6 MILLIGRAM
     Route: 048
  3. PLAVIX [Concomitant]
     Dosage: 75 MILLIGRAM
     Route: 048
  4. ZOCOR [Concomitant]
     Dosage: 40 MILLIGRAM
     Route: 048
  5. REVLIMID [Suspect]
     Indication: MULTIPLE MYELOMA
     Dosage: 25 MILLIGRAM
     Route: 048
     Dates: start: 20110501, end: 20110101
  6. REVLIMID [Suspect]
     Dosage: 15 MILLIGRAM
     Route: 048
     Dates: start: 20111201, end: 20120101
  7. WHOLE BLOOD [Concomitant]
     Indication: PANCYTOPENIA
     Dosage: 2 UNITS
     Route: 041
     Dates: start: 20120401
  8. ASPIRIN [Concomitant]
     Dosage: 325 MILLIGRAM
     Route: 048
  9. NITROGLYCERIN [Concomitant]
     Route: 065
  10. ACCUPRIL [Concomitant]
     Dosage: 40 MILLIGRAM
     Route: 048
  11. AVODART [Concomitant]
     Dosage: .5 MILLIGRAM
     Route: 048
  12. FUROSEMIDE [Concomitant]
     Indication: FLUID OVERLOAD
     Dosage: 40 MILLIGRAM
     Route: 048
  13. TOPROL-XL [Concomitant]
     Dosage: 25 MILLIGRAM
     Route: 048
  14. FUROSEMIDE [Concomitant]

REACTIONS (4)
  - LEUKOPENIA [None]
  - SEPTIC SHOCK [None]
  - MULTIPLE MYELOMA [None]
  - RENAL FAILURE [None]
